FAERS Safety Report 11779433 (Version 2)
Quarter: 2016Q1

REPORT INFORMATION
  Report Type: Spontaneous
  Country: US (occurrence: US)
  Receive Date: 20151125
  Receipt Date: 20160120
  Transmission Date: 20160525
  Serious: Yes (Hospitalization, Other)
  Sender: FDA-Public Use
  Company Number: US-SA-2015SA178158

PATIENT
  Age: 14 Year
  Sex: Male

DRUGS (2)
  1. AUVI-Q [Suspect]
     Active Substance: EPINEPHRINE
     Indication: ANAPHYLACTIC SHOCK
     Route: 065
  2. AUVI-Q [Suspect]
     Active Substance: EPINEPHRINE
     Indication: HYPERSENSITIVITY
     Route: 065

REACTIONS (7)
  - Dyspnoea [Unknown]
  - Apparent death [Unknown]
  - Erythema [Unknown]
  - Vomiting [Unknown]
  - Drug ineffective [Unknown]
  - Shock [Unknown]
  - Pharyngeal oedema [Unknown]
